FAERS Safety Report 11760344 (Version 5)
Quarter: 2016Q3

REPORT INFORMATION
  Report Type: Report from Study
  Country: BR (occurrence: BR)
  Receive Date: 20151120
  Receipt Date: 20160803
  Transmission Date: 20161109
  Serious: Yes (Hospitalization, Other)
  Sender: FDA-Public Use
  Company Number: PHHY2015BR151581

PATIENT
  Age: 63 Year
  Sex: Female
  Weight: 49 kg

DRUGS (1)
  1. SANDOSTATIN LAR DEPOT [Suspect]
     Active Substance: OCTREOTIDE ACETATE
     Indication: ACROMEGALY
     Dosage: 20 MG, QMO, EVERY 30 DAYS
     Route: 030
     Dates: start: 2009

REACTIONS (30)
  - Carotid artery occlusion [Unknown]
  - Abdominal pain [Unknown]
  - Vomiting [Not Recovered/Not Resolved]
  - Arrhythmia [Unknown]
  - Myocardial infarction [Recovered/Resolved]
  - Pain in extremity [Unknown]
  - Musculoskeletal stiffness [Unknown]
  - Peripheral swelling [Unknown]
  - Anxiety [Unknown]
  - Vein disorder [Unknown]
  - Rheumatic disorder [Unknown]
  - Insulin-like growth factor increased [Unknown]
  - Dizziness [Recovered/Resolved]
  - Headache [Recovered/Resolved]
  - Hypercoagulation [Unknown]
  - Blood growth hormone increased [Unknown]
  - Malaise [Recovering/Resolving]
  - Infection [Unknown]
  - Blood cholesterol increased [Recovering/Resolving]
  - Concomitant disease aggravated [Not Recovered/Not Resolved]
  - Memory impairment [Unknown]
  - Glaucoma [Unknown]
  - Apnoea [Recovering/Resolving]
  - Loss of consciousness [Recovered/Resolved]
  - Visual impairment [Unknown]
  - Procedural pain [Unknown]
  - Respiratory arrest [Recovered/Resolved]
  - Diabetes mellitus [Unknown]
  - Abdominal distension [Unknown]
  - Fatigue [Recovering/Resolving]

NARRATIVE: CASE EVENT DATE: 20151110
